FAERS Safety Report 9120260 (Version 3)
Quarter: 2013Q2

REPORT INFORMATION
  Report Type: Spontaneous
  Country: US (occurrence: US)
  Receive Date: 20130226
  Receipt Date: 20130429
  Transmission Date: 20140414
  Serious: Yes (Other)
  Sender: FDA-Public Use
  Company Number: US-BAYER-2013-022323

PATIENT
  Age: 70 Year
  Sex: Female
  Weight: 67 kg

DRUGS (9)
  1. BAYER WOMEN^S LOW STRENGTH ASPIRIN REGIMEN [Suspect]
     Indication: ISCHAEMIC HEART DISEASE PROPHYLAXIS
     Dosage: 1 DF, QD
     Route: 048
     Dates: start: 201212, end: 201302
  2. PEPCID [Concomitant]
     Indication: ABDOMINAL DISCOMFORT
     Dosage: UNK UNK, PRN
     Dates: start: 2011
  3. SYNTHROID [Concomitant]
     Dosage: UNK
     Dates: start: 200609
  4. OMEGA 3 [Concomitant]
     Dosage: UNK UNK, PRN
     Dates: start: 2010
  5. VITAMIN D3 [Concomitant]
  6. HERBAL PREPARATION [Concomitant]
  7. OMEPRAZOLE [Concomitant]
     Indication: GASTROOESOPHAGEAL REFLUX DISEASE
     Dosage: 1 EVERY DAY, PRN
     Dates: start: 2011
  8. MAGNESIUM [Concomitant]
     Dosage: UNK UNK, QD
     Dates: start: 2011
  9. ASPIRIN [Concomitant]
     Dosage: UNK
     Dates: start: 201302

REACTIONS (1)
  - Heart rate irregular [Recovered/Resolved]
